FAERS Safety Report 15627356 (Version 1)
Quarter: 2018Q4

REPORT INFORMATION
  Report Type: Spontaneous
  Country: US (occurrence: US)
  Receive Date: 20181116
  Receipt Date: 20181116
  Transmission Date: 20190205
  Serious: Yes (Hospitalization)
  Sender: FDA-Public Use
  Company Number: None

PATIENT
  Sex: Female
  Weight: 83.46 kg

DRUGS (1)
  1. NEXPLANON [Suspect]
     Active Substance: ETONOGESTREL

REACTIONS (13)
  - Headache [None]
  - Impaired work ability [None]
  - Gait disturbance [None]
  - Scar [None]
  - Anxiety [None]
  - Depressed mood [None]
  - Feeling abnormal [None]
  - Fatigue [None]
  - Depression [None]
  - Pelvic pain [None]
  - Hypoaesthesia [None]
  - Ovarian cyst [None]
  - Nerve injury [None]
